FAERS Safety Report 10014226 (Version 6)
Quarter: 2014Q3

REPORT INFORMATION
  Report Type: Spontaneous
  Country: JP (occurrence: JP)
  Receive Date: 20140317
  Receipt Date: 20140911
  Transmission Date: 20150326
  Serious: Yes (Other)
  Sender: FDA-Public Use
  Company Number: JP-JNJFOC-20140306204

PATIENT
  Age: 58 Year
  Sex: Female

DRUGS (4)
  1. CLARITH [Concomitant]
     Active Substance: CLARITHROMYCIN
     Route: 048
  2. REBAMIPIDE [Concomitant]
     Active Substance: REBAMIPIDE
     Route: 065
  3. ITRIZOLE [Suspect]
     Active Substance: ITRACONAZOLE
     Indication: BRONCHOPULMONARY ASPERGILLOSIS
     Route: 048
     Dates: start: 20120524
  4. AMLODIN [Concomitant]
     Active Substance: AMLODIPINE BESYLATE
     Indication: BLOOD PRESSURE INCREASED
     Route: 048

REACTIONS (4)
  - Blood pressure increased [Unknown]
  - Strabismus [Unknown]
  - Normal tension glaucoma [Unknown]
  - Vision blurred [Unknown]

NARRATIVE: CASE EVENT DATE: 20131203
